FAERS Safety Report 16980731 (Version 1)
Quarter: 2019Q4

REPORT INFORMATION
  Report Type: Spontaneous
  Country: US (occurrence: US)
  Receive Date: 20191031
  Receipt Date: 20191031
  Transmission Date: 20200122
  Serious: No
  Sender: FDA-Public Use
  Company Number: US-PERRIGO-19US006325

PATIENT
  Sex: Female

DRUGS (2)
  1. DOXYLAMINE SUCCINATE. [Suspect]
     Active Substance: DOXYLAMINE SUCCINATE
     Dosage: 1/4 TABLET, SINGLE
     Route: 048
     Dates: start: 20190519, end: 20190519
  2. DOXYLAMINE SUCCINATE. [Suspect]
     Active Substance: DOXYLAMINE SUCCINATE
     Indication: INSOMNIA
     Dosage: 1/4 TABLET, NIGHTLY
     Route: 048
     Dates: start: 201904, end: 20190515

REACTIONS (5)
  - Fatigue [Recovered/Resolved]
  - Wrong technique in product usage process [Recovered/Resolved]
  - Myalgia [Recovered/Resolved]
  - Incorrect product administration duration [Recovered/Resolved]
  - Underdose [Recovered/Resolved]

NARRATIVE: CASE EVENT DATE: 201904
